FAERS Safety Report 25545410 (Version 1)
Quarter: 2025Q3

REPORT INFORMATION
  Report Type: Spontaneous
  Country: GB (occurrence: GB)
  Receive Date: 20250711
  Receipt Date: 20250711
  Transmission Date: 20251021
  Serious: Yes (Death, Other)
  Sender: PFIZER
  Company Number: GB-PFIZER INC-202500139251

PATIENT
  Age: 76 Year
  Sex: Male

DRUGS (1)
  1. ELREXFIO [Suspect]
     Active Substance: ELRANATAMAB-BCMM
     Dates: start: 202506, end: 202506

REACTIONS (2)
  - Death [Fatal]
  - Cytokine release syndrome [Unknown]

NARRATIVE: CASE EVENT DATE: 20250101
